FAERS Safety Report 24001427 (Version 2)
Quarter: 2024Q2

REPORT INFORMATION
  Report Type: Report from Study
  Country: CA (occurrence: CA)
  Receive Date: 20240621
  Receipt Date: 20240626
  Transmission Date: 20240715
  Serious: Yes (Hospitalization, Other)
  Sender: FDA-Public Use
  Company Number: CA-MYLANLABS-2024M1055668

PATIENT

DRUGS (1)
  1. LYRICA [Suspect]
     Active Substance: PREGABALIN
     Indication: Product used for unknown indication
     Dosage: UNK
     Route: 065

REACTIONS (6)
  - Drug withdrawal syndrome [Unknown]
  - Suicidal ideation [Unknown]
  - Impaired work ability [Unknown]
  - Antidepressant discontinuation syndrome [Unknown]
  - Insomnia [Unknown]
  - Inappropriate schedule of product discontinuation [Unknown]
